FAERS Safety Report 7386539-8 (Version None)
Quarter: 2011Q1

REPORT INFORMATION
  Report Type: 
  Country: None (occurrence: None)
  Receive Date: 20110323
  Receipt Date: 20110308
  Transmission Date: 20110831
  Serious: Yes (Death, Other)
  Sender: FDA-Public Use
  Company Number: 20110184

PATIENT
  Sex: Female

DRUGS (2)
  1. METHYLENE BLUE INJECTION, USP (METHYLENE BLUE) 10 MG/ML [Suspect]
     Indication: SURGERY
     Dosage: 7.5 MG/KG;
  2. SSRI [Concomitant]

REACTIONS (3)
  - TOXICITY TO VARIOUS AGENTS [None]
  - TOXIC ENCEPHALOPATHY [None]
  - NERVOUS SYSTEM DISORDER [None]
